FAERS Safety Report 10223066 (Version 1)
Quarter: 2014Q2

REPORT INFORMATION
  Report Type: Report from Study
  Country: BR (occurrence: BR)
  Receive Date: 20140607
  Receipt Date: 20140607
  Transmission Date: 20141212
  Serious: Yes (Hospitalization, Other)
  Sender: FDA-Public Use
  Company Number: PHHY2014BR066925

PATIENT
  Sex: Male
  Weight: 98 kg

DRUGS (12)
  1. ONBREZ [Suspect]
     Indication: EMPHYSEMA
     Dosage: 1 DF, DAILY
     Route: 048
  2. MIFLONIDE [Suspect]
     Indication: EMPHYSEMA
     Dosage: 400 UG, BID
  3. AAS [Concomitant]
     Dosage: 100 MG, UNK
  4. CARVEDILOL [Concomitant]
     Dosage: UNK UKN, UNK
  5. LOSARTAN [Concomitant]
     Dosage: UNK UKN, UNK
  6. AMLODIPINE [Concomitant]
     Indication: CARDIAC DISORDER
     Dosage: 10 MG, UNK
  7. ALDACTONE [Concomitant]
     Indication: CARDIAC DISORDER
     Dosage: 25 MG, UNK
  8. FUROSEMIDE [Concomitant]
     Indication: CARDIAC DISORDER
     Dosage: 40 MG, UNK
  9. PRADAX [Concomitant]
     Indication: CARDIAC DISORDER
     Dosage: 150 MG, UNK
  10. XARELTO [Concomitant]
     Indication: CARDIAC DISORDER
     Dosage: 20 MG, UNK
  11. AMIODARONE [Concomitant]
     Indication: CARDIAC DISORDER
     Dosage: 200 MG, UNK
  12. FORASEQ [Concomitant]
     Indication: EMPHYSEMA
     Dosage: UNK (12/400), BID
     Route: 055

REACTIONS (8)
  - Malaise [Unknown]
  - Arrhythmia [Unknown]
  - Cardiac disorder [Unknown]
  - Heart rate increased [Unknown]
  - Nervousness [Unknown]
  - Dyspnoea [Unknown]
  - Syncope [Unknown]
  - Dizziness [Unknown]
